FAERS Safety Report 24067506 (Version 2)
Quarter: 2024Q3

REPORT INFORMATION
  Report Type: Spontaneous
  Country: US (occurrence: US)
  Receive Date: 20240709
  Receipt Date: 20240724
  Transmission Date: 20241017
  Serious: Yes (Other)
  Sender: ABBVIE
  Company Number: US-ABBVIE-5826560

PATIENT
  Sex: Female

DRUGS (1)
  1. BOTOX COSMETIC [Suspect]
     Active Substance: ONABOTULINUMTOXINA
     Indication: Product used for unknown indication
     Dosage: TIME INTERVAL: AS NECESSARY
     Route: 030
     Dates: start: 20240619, end: 20240619

REACTIONS (8)
  - Paraesthesia oral [Recovering/Resolving]
  - Muscular weakness [Recovering/Resolving]
  - Influenza like illness [Recovering/Resolving]
  - Sensory disturbance [Recovering/Resolving]
  - Paraesthesia [Unknown]
  - Dry mouth [Unknown]
  - Throat tightness [Unknown]
  - Dyspnoea [Unknown]

NARRATIVE: CASE EVENT DATE: 20240622
